FAERS Safety Report 13430739 (Version 1)
Quarter: 2017Q2

REPORT INFORMATION
  Report Type: Report from Study
  Country: UA (occurrence: UA)
  Receive Date: 20170412
  Receipt Date: 20170412
  Transmission Date: 20170830
  Serious: Yes (Death)
  Sender: FDA-Public Use
  Company Number: UA-ROCHE-1027428

PATIENT
  Age: 50 Year
  Sex: Male
  Weight: 76 kg

DRUGS (22)
  1. GLUCOSE [Concomitant]
     Active Substance: DEXTROSE
     Indication: DEHYDRATION
     Route: 042
     Dates: start: 20111026, end: 20111026
  2. OCRELIZUMAB [Suspect]
     Active Substance: OCRELIZUMAB
     Indication: PRIMARY PROGRESSIVE MULTIPLE SCLEROSIS
     Dosage: 200ML INFUSED
     Route: 042
     Dates: start: 20111026, end: 20111026
  3. SOLU-MEDROL [Concomitant]
     Active Substance: METHYLPREDNISOLONE SODIUM SUCCINATE
     Indication: PROPHYLAXIS
     Route: 042
     Dates: start: 20111026, end: 20111026
  4. SOLU-MEDROL [Concomitant]
     Active Substance: METHYLPREDNISOLONE SODIUM SUCCINATE
     Indication: PREMEDICATION
  5. MAGNESIUM SULPHATE [Concomitant]
     Active Substance: MAGNESIUM SULFATE
     Indication: HYPERTENSION
     Route: 065
     Dates: start: 20111026, end: 20111026
  6. TRISOLUM [Concomitant]
     Indication: DEHYDRATION
     Route: 042
     Dates: start: 20111026, end: 20111026
  7. PREDNISOLONE. [Concomitant]
     Active Substance: PREDNISOLONE
     Route: 042
     Dates: start: 20111026, end: 20111026
  8. OCRELIZUMAB [Suspect]
     Active Substance: OCRELIZUMAB
     Dosage: LAST DOSE PRIOR TO SAE: 01/DEC/2011, 200ML INFUSED
     Route: 042
     Dates: start: 20111201, end: 20111201
  9. ASCORBIN [Concomitant]
     Indication: PETECHIAE
     Route: 042
     Dates: start: 20111026, end: 20111026
  10. NORMAL SALINE [Concomitant]
     Active Substance: SODIUM CHLORIDE
     Indication: DEHYDRATION
     Route: 042
     Dates: start: 20111026, end: 20111026
  11. TAVEGYL [Concomitant]
     Active Substance: CLEMASTINE FUMARATE
     Indication: PRURITUS
     Route: 030
     Dates: start: 20111026, end: 20111026
  12. METHYLPREDNISOLONE. [Concomitant]
     Active Substance: METHYLPREDNISOLONE
     Route: 042
     Dates: start: 20111201, end: 20111201
  13. PAPAVERINE [Concomitant]
     Active Substance: PAPAVERINE
     Indication: HYPERTENSION
     Route: 030
     Dates: start: 20111026, end: 20111026
  14. PREDNISOLONE. [Concomitant]
     Active Substance: PREDNISOLONE
     Indication: PRURITUS
     Route: 040
     Dates: start: 20111026, end: 20111026
  15. PARACETAMOL [Concomitant]
     Active Substance: ACETAMINOPHEN
     Indication: HYPERPYREXIA
     Route: 065
     Dates: start: 20111027, end: 20111027
  16. RINGER SOL. [Concomitant]
     Indication: DEHYDRATION
     Route: 042
     Dates: start: 20111026, end: 20111026
  17. DIBAZOLE [Concomitant]
     Indication: HYPERTENSION
     Route: 030
     Dates: start: 20111026, end: 20111026
  18. METHYLPREDNISOLONE. [Concomitant]
     Active Substance: METHYLPREDNISOLONE
     Route: 042
     Dates: start: 20111126, end: 20111127
  19. REFORTAN [Concomitant]
     Active Substance: HETASTARCH
     Indication: HYPOTENSION
     Route: 042
     Dates: start: 20111026, end: 20111027
  20. TRISOLUM [Concomitant]
     Indication: HYPOTENSION
     Dosage: SOL. (SOLUTION).
     Route: 042
     Dates: start: 20111026, end: 20111026
  21. METHYLPREDNISOLONE. [Concomitant]
     Active Substance: METHYLPREDNISOLONE
     Indication: PREMEDICATION
     Route: 042
     Dates: start: 20111026, end: 20111026
  22. NORMAL SALINE [Concomitant]
     Active Substance: SODIUM CHLORIDE
     Route: 042
     Dates: start: 20111026, end: 20111026

REACTIONS (1)
  - Pneumonia [Fatal]

NARRATIVE: CASE EVENT DATE: 20120101
